FAERS Safety Report 19196012 (Version 1)
Quarter: 2021Q2

REPORT INFORMATION
  Report Type: Report from Study
  Country: FR (occurrence: FR)
  Receive Date: 20210429
  Receipt Date: 20210429
  Transmission Date: 20210717
  Serious: Yes (Hospitalization, Other)
  Sender: FDA-Public Use
  Company Number: FR-KYOWAKIRIN-2021BKK006678

PATIENT

DRUGS (1)
  1. POTELIGEO [Suspect]
     Active Substance: MOGAMULIZUMAB-KPKC
     Indication: CUTANEOUS T-CELL LYMPHOMA STAGE II
     Dosage: IN A CONTEXT OF ATUC
     Route: 042
     Dates: start: 20190513, end: 20190822

REACTIONS (6)
  - Lymphopenia [Recovered/Resolved]
  - Myalgia [Recovered/Resolved]
  - Hypercalcaemia [Recovered/Resolved]
  - Anaemia [Recovered/Resolved]
  - Hepatic cytolysis [Recovered/Resolved]
  - Gamma-glutamyltransferase increased [Recovered/Resolved]

NARRATIVE: CASE EVENT DATE: 20190601
